FAERS Safety Report 8215909-0 (Version None)
Quarter: 2012Q1

REPORT INFORMATION
  Report Type: 
  Country: None (occurrence: None)
  Receive Date: 20120316
  Receipt Date: 20120308
  Transmission Date: 20120608
  Serious: Yes (Other)
  Sender: FDA-Public Use
  Company Number: US-BAYER-2011-105720

PATIENT
  Age: 23 Year
  Sex: Female

DRUGS (2)
  1. YASMIN [Suspect]
     Indication: ORAL CONTRACEPTION
     Route: 048
  2. YAZ [Suspect]
     Dosage: UNK
     Dates: start: 20040101, end: 20080101

REACTIONS (2)
  - PAIN [None]
  - DEEP VEIN THROMBOSIS [None]
